FAERS Safety Report 16781031 (Version 2)
Quarter: 2019Q3

REPORT INFORMATION
  Report Type: Spontaneous
  Country: BR (occurrence: BR)
  Receive Date: 20190906
  Receipt Date: 20190926
  Transmission Date: 20191005
  Serious: Yes (Death, Hospitalization, Other)
  Sender: FDA-Public Use
  Company Number: BR-PFIZER INC-2019380208

PATIENT
  Age: 68 Year
  Sex: Female

DRUGS (1)
  1. SUTENT [Suspect]
     Active Substance: SUNITINIB MALATE
     Dosage: UNK
     Dates: start: 20190819

REACTIONS (15)
  - Bronchospasm [Unknown]
  - Screaming [Unknown]
  - Confusional state [Recovered/Resolved]
  - Loss of personal independence in daily activities [Unknown]
  - Asthenia [Unknown]
  - Metastases to kidney [Unknown]
  - Pneumonia [Unknown]
  - Vomiting [Unknown]
  - Renal failure [Unknown]
  - Blood sodium decreased [Unknown]
  - Feeding disorder [Unknown]
  - Blindness transient [Unknown]
  - Respiratory arrest [Unknown]
  - Death [Fatal]
  - Delusion [Not Recovered/Not Resolved]

NARRATIVE: CASE EVENT DATE: 20190826
